FAERS Safety Report 6568223-3 (Version None)
Quarter: 2010Q1

REPORT INFORMATION
  Report Type: 
  Country: None (occurrence: None)
  Receive Date: 20100203
  Receipt Date: 20100128
  Transmission Date: 20100710
  Serious: Yes (Congenital Anomaly)
  Sender: FDA-Public Use
  Company Number: US-ROCHE-682804

PATIENT
  Sex: Female
  Weight: 3.1 kg

DRUGS (5)
  1. SAQUINAVIR [Suspect]
     Indication: ILL-DEFINED DISORDER
     Dosage: DOSE: 2000 MG/DAY
     Route: 064
     Dates: start: 20070319, end: 20090924
  2. NELFINAVIR MESYLATE [Suspect]
     Indication: ILL-DEFINED DISORDER
     Dosage: DOSE: 2500 MG/DAY
     Route: 064
     Dates: start: 20090924
  3. RITONAVIR [Suspect]
     Indication: ILL-DEFINED DISORDER
     Dosage: DOSE: 200 MG/DAY
     Route: 064
     Dates: start: 20070319, end: 20090924
  4. LAMIVUDINE + ZIDOVUDINE [Suspect]
     Indication: ILL-DEFINED DISORDER
     Dosage: DOSE: 2 DOSE FORMS (TABLET/CAPSULE)
     Route: 064
     Dates: start: 20070319
  5. ZIDOVUDINE [Suspect]
     Indication: ILL-DEFINED DISORDER
     Route: 064
     Dates: start: 20100109, end: 20100109

REACTIONS (1)
  - CONGENITAL NAIL DISORDER [None]
